FAERS Safety Report 13139018 (Version 2)
Quarter: 2017Q1

REPORT INFORMATION
  Report Type: Spontaneous
  Country: JP (occurrence: JP)
  Receive Date: 20170123
  Receipt Date: 20170208
  Transmission Date: 20170428
  Serious: Yes (Hospitalization)
  Sender: FDA-Public Use
  Company Number: JP-NOVOPROD-527526

PATIENT
  Age: 27 Year
  Sex: Female
  Weight: 64 kg

DRUGS (2)
  1. MARIZEV [Concomitant]
     Indication: TYPE 1 DIABETES MELLITUS
     Dosage: 25 MG, QW
     Route: 048
  2. RYZODEG 70/30 [Suspect]
     Active Substance: INSULIN ASPART\INSULIN DEGLUDEC
     Indication: TYPE 1 DIABETES MELLITUS
     Dosage: 42 IU, QD (20-0-22 UNITS/DAY)
     Route: 058
     Dates: start: 201604, end: 20170108

REACTIONS (1)
  - Ketoacidosis [Recovered/Resolved]

NARRATIVE: CASE EVENT DATE: 20170108
